FAERS Safety Report 25943174 (Version 1)
Quarter: 2025Q4

REPORT INFORMATION
  Report Type: Spontaneous
  Country: US (occurrence: None)
  Receive Date: 20251020
  Receipt Date: 20251020
  Transmission Date: 20260117
  Serious: Yes (Other)
  Sender: FDA-CTU
  Company Number: None

PATIENT
  Age: 68 Year
  Sex: Female

DRUGS (12)
  1. JAKAFI [Suspect]
     Active Substance: RUXOLITINIB
     Indication: Chronic graft versus host disease
     Dosage: FREQUENCY : TWICE A DAY;?
     Route: 048
     Dates: start: 20250328, end: 20250930
  2. FOLIC ACID [Concomitant]
     Active Substance: FOLIC ACID
  3. PANTOPRAZOLE [Concomitant]
     Active Substance: PANTOPRAZOLE
  4. POSACONAZOLE [Concomitant]
     Active Substance: POSACONAZOLE
  5. ATOVAQUONE [Concomitant]
     Active Substance: ATOVAQUONE
  6. VANCOMYCIN [Concomitant]
     Active Substance: VANCOMYCIN
  7. PREVYMIS [Concomitant]
     Active Substance: LETERMOVIR
  8. ASPIRIN [Concomitant]
     Active Substance: ASPIRIN
  9. BUDESONIDE [Concomitant]
     Active Substance: BUDESONIDE
  10. VALACYCLOVIR [Concomitant]
     Active Substance: VALACYCLOVIR HYDROCHLORIDE
  11. ELIQUIS [Concomitant]
     Active Substance: APIXABAN
  12. MIRTAZAPINE [Concomitant]
     Active Substance: MIRTAZAPINE

REACTIONS (5)
  - Visual impairment [None]
  - Cataract [None]
  - Myalgia [None]
  - Muscular weakness [None]
  - Dizziness [None]

NARRATIVE: CASE EVENT DATE: 20250929
